FAERS Safety Report 19276877 (Version 1)
Quarter: 2021Q2

REPORT INFORMATION
  Report Type: Spontaneous
  Country: ES (occurrence: ES)
  Receive Date: 20210519
  Receipt Date: 20210519
  Transmission Date: 20210717
  Serious: Yes (Death, Other)
  Sender: FDA-Public Use
  Company Number: ES-INTERCEPT-PM2021001333

PATIENT
  Age: 77 Year
  Sex: Female

DRUGS (9)
  1. OCALIVA [Suspect]
     Active Substance: OBETICHOLIC ACID
     Dosage: 5 MILLIGRAM, QW
     Route: 048
     Dates: start: 20200922, end: 202102
  2. ALDACTONE [Concomitant]
     Active Substance: SPIRONOLACTONE
     Dosage: UNK
     Dates: start: 20200707, end: 20210218
  3. AMERIDE [AMILORIDE HYDROCHLORIDE;HYDROCHLOROTHIAZIDE] [Concomitant]
     Active Substance: AMILORIDE HYDROCHLORIDE\HYDROCHLOROTHIAZIDE
     Indication: ASCITES
     Dosage: UNK
     Dates: start: 20200916, end: 20210218
  4. APTIVATE [Concomitant]
     Indication: VITAMIN B12 DEFICIENCY
     Dosage: UNK
     Dates: end: 20210218
  5. ESCITALOPRAM [Concomitant]
     Active Substance: ESCITALOPRAM OXALATE
     Indication: DEPRESSION
     Dosage: UNK
     Dates: end: 20210218
  6. JANUMET [Concomitant]
     Active Substance: METFORMIN HYDROCHLORIDE\SITAGLIPTIN PHOSPHATE
     Indication: DIABETES MELLITUS
     Dosage: UNK
     Dates: end: 20210218
  7. URSOBILANE [Concomitant]
     Indication: PRIMARY BILIARY CHOLANGITIS
     Dosage: 500 MILLIGRAM, TID
     Dates: start: 2010, end: 20210218
  8. EUTIROX [Concomitant]
     Active Substance: LEVOTHYROXINE SODIUM
     Indication: HYPOTHYROIDISM
     Dosage: UNK
     Dates: end: 20210218
  9. SEGURIL [Concomitant]
     Active Substance: FUROSEMIDE
     Indication: ASCITES
     Dosage: UNK
     Dates: start: 20200707, end: 20210218

REACTIONS (6)
  - Prothrombin time prolonged [Unknown]
  - Hepatic encephalopathy [Unknown]
  - Hepatic failure [Fatal]
  - International normalised ratio increased [Unknown]
  - Gastrointestinal haemorrhage [Unknown]
  - Hepatic cirrhosis [Unknown]

NARRATIVE: CASE EVENT DATE: 202008
